FAERS Safety Report 15925563 (Version 6)
Quarter: 2019Q2

REPORT INFORMATION
  Report Type: Spontaneous
  Country: US (occurrence: US)
  Receive Date: 20190206
  Receipt Date: 20190508
  Transmission Date: 20190711
  Serious: No
  Sender: FDA-Public Use
  Company Number: US-PFIZER INC-2019048160

PATIENT
  Sex: Female

DRUGS (2)
  1. EPINEPHRINE/LIDOCAINE HYDROCHLORIDE [Suspect]
     Active Substance: EPINEPHRINE\LIDOCAINE HYDROCHLORIDE
     Indication: HYPOAESTHESIA
     Dosage: UNK
     Dates: start: 20190129
  2. SODIUM BICARBONATE. [Suspect]
     Active Substance: SODIUM BICARBONATE
     Indication: HYPOAESTHESIA
     Dosage: 8.4% INJECTION USP 50ML
     Dates: start: 20190129

REACTIONS (7)
  - Flushing [Unknown]
  - Injection site pain [Recovered/Resolved]
  - Hyperventilation [Unknown]
  - Injection site erythema [Recovered/Resolved]
  - Injection site induration [Unknown]
  - Drug ineffective [Recovered/Resolved]
  - Dizziness [Unknown]

NARRATIVE: CASE EVENT DATE: 20190129
